FAERS Safety Report 26207718 (Version 1)
Quarter: 2025Q4

REPORT INFORMATION
  Report Type: Spontaneous
  Country: US (occurrence: None)
  Receive Date: 20251225
  Receipt Date: 20251225
  Transmission Date: 20260118
  Serious: Yes (Hospitalization)
  Sender: FDA-CTU
  Company Number: None

PATIENT
  Age: 17 Year
  Sex: Male
  Weight: 60.3 kg

DRUGS (2)
  1. TAMIFLU [Suspect]
     Active Substance: OSELTAMIVIR PHOSPHATE
     Indication: Influenza
     Dates: start: 20251218, end: 20251223
  2. Allegra 1 pill [Concomitant]
     Dosage: FREQUENCY : DAILY;

REACTIONS (2)
  - Loss of consciousness [None]
  - Bradycardia [None]

NARRATIVE: CASE EVENT DATE: 20251224
